FAERS Safety Report 4407950-0 (Version None)
Quarter: 2004Q3

REPORT INFORMATION
  Report Type: 
  Country: None (occurrence: None)
  Receive Date: 20040716
  Receipt Date: 20040708
  Transmission Date: 20050211
  Serious: Yes (Other)
  Sender: FDA-Public Use
  Company Number: 2004222896DE

PATIENT
  Sex: Female

DRUGS (1)
  1. ADRIBLASTIN CS (DOXORUBICIN HYDROCHLORIDE) SOLUTION, STERILE [Suspect]
     Indication: BREAST CANCER
     Dosage: INTRA-ARTERIAL
     Route: 013

REACTIONS (1)
  - NECROSIS [None]
